FAERS Safety Report 13515527 (Version 2)
Quarter: 2017Q2

REPORT INFORMATION
  Report Type: Spontaneous
  Country: US (occurrence: US)
  Receive Date: 20170504
  Receipt Date: 20170512
  Transmission Date: 20170830
  Serious: No
  Sender: FDA-Public Use
  Company Number: US-VIFOR (INTERNATIONAL) INC.-VIT-2017-04765

PATIENT
  Age: 70 Year
  Sex: Male

DRUGS (10)
  1. VELTASSA [Suspect]
     Active Substance: PATIROMER
     Indication: HYPERKALAEMIA
     Route: 048
     Dates: start: 201704
  2. KEPPRA [Concomitant]
     Active Substance: LEVETIRACETAM
  3. FERROUS SULFATE. [Concomitant]
     Active Substance: FERROUS SULFATE
  4. LAMICTAL [Concomitant]
     Active Substance: LAMOTRIGINE
  5. CALCITRIOL. [Concomitant]
     Active Substance: CALCITRIOL
  6. SIMVASTATIN. [Concomitant]
     Active Substance: SIMVASTATIN
  7. SODIUM BICARBONATE. [Concomitant]
     Active Substance: SODIUM BICARBONATE
  8. ABILIFY [Concomitant]
     Active Substance: ARIPIPRAZOLE
  9. LEXAPRO [Concomitant]
     Active Substance: ESCITALOPRAM OXALATE
  10. ASCORBIC ACID. [Concomitant]
     Active Substance: ASCORBIC ACID

REACTIONS (5)
  - Flatulence [Not Recovered/Not Resolved]
  - Faeces soft [Not Recovered/Not Resolved]
  - Abdominal discomfort [Not Recovered/Not Resolved]
  - Constipation [Unknown]
  - Faeces hard [Not Recovered/Not Resolved]

NARRATIVE: CASE EVENT DATE: 201704
